FAERS Safety Report 23063345 (Version 1)
Quarter: 2023Q4

REPORT INFORMATION
  Report Type: Spontaneous
  Country: DE (occurrence: DE)
  Receive Date: 20231013
  Receipt Date: 20231013
  Transmission Date: 20240110
  Serious: Yes (Hospitalization, Other)
  Sender: FDA-Public Use
  Company Number: DE-ORG100014127-2023001019

PATIENT
  Age: 27 Year
  Sex: Female

DRUGS (8)
  1. MITOTANE [Suspect]
     Active Substance: MITOTANE
     Indication: Adrenocortical carcinoma
     Route: 048
  2. ETOPOSIDE [Concomitant]
     Active Substance: ETOPOSIDE
     Indication: Adrenocortical carcinoma
  3. CISPLATIN [Concomitant]
     Active Substance: CISPLATIN
     Indication: Adrenocortical carcinoma
  4. DOXORUBICIN [Concomitant]
     Active Substance: DOXORUBICIN
     Indication: Adrenocortical carcinoma
  5. STREPTOZOCIN [Concomitant]
     Active Substance: STREPTOZOCIN
     Indication: Adrenocortical carcinoma
  6. TEMOZOLOMIDE [Concomitant]
     Active Substance: TEMOZOLOMIDE
     Indication: Adrenocortical carcinoma
  7. PEMBROLIZUMAB [Concomitant]
     Active Substance: PEMBROLIZUMAB
     Indication: Adrenocortical carcinoma
  8. INFLIXIMAB [Concomitant]
     Active Substance: INFLIXIMAB
     Indication: Adrenocortical carcinoma

REACTIONS (3)
  - Influenza [Unknown]
  - Malignant neoplasm progression [Recovering/Resolving]
  - Adrenocortical insufficiency acute [Unknown]
